FAERS Safety Report 8712464 (Version 3)
Quarter: 2012Q4

REPORT INFORMATION
  Report Type: 
  Country: US (occurrence: US)
  Receive Date: 20120808
  Receipt Date: 20120927
  Transmission Date: 20130627
  Serious: Yes (Hospitalization, Other)
  Sender: FDA-Public Use
  Company Number: PHEH2011US009496

PATIENT
  Age: 41 None
  Sex: Female

DRUGS (1)
  1. GILENYA [Suspect]
     Indication: RELAPSING-REMITTING MULTIPLE SCLEROSIS
     Route: 048

REACTIONS (11)
  - Blood potassium decreased [Unknown]
  - Anaphylactic shock [Recovering/Resolving]
  - Hypersensitivity [Recovering/Resolving]
  - Multiple sclerosis relapse [Recovering/Resolving]
  - Optic neuritis [Recovering/Resolving]
  - Cognitive disorder [Recovering/Resolving]
  - Visual impairment [Recovering/Resolving]
  - Psoriasis [Recovering/Resolving]
  - Cerebral atrophy [Unknown]
  - Stress [Recovering/Resolving]
  - Blood pressure increased [Unknown]
